FAERS Safety Report 7763560-9 (Version None)
Quarter: 2011Q3

REPORT INFORMATION
  Report Type: 
  Country: None (occurrence: None)
  Receive Date: 20110920
  Receipt Date: 20110916
  Transmission Date: 20111222
  Serious: Yes (Death)
  Sender: FDA-Public Use
  Company Number: US-GILEAD-2011-0043789

PATIENT
  Sex: Female

DRUGS (3)
  1. LETAIRIS [Suspect]
     Indication: PULMONARY HYPERTENSION
     Route: 048
     Dates: start: 20010917
  2. LETAIRIS [Suspect]
     Indication: MIXED CONNECTIVE TISSUE DISEASE
  3. LETAIRIS [Suspect]
     Indication: SCLERODERMA

REACTIONS (6)
  - RIGHT VENTRICULAR FAILURE [None]
  - BRADYCARDIA [None]
  - SCLERODERMA [None]
  - PULMONARY HYPERTENSION [None]
  - MIXED CONNECTIVE TISSUE DISEASE [None]
  - MULTI-ORGAN FAILURE [None]
